FAERS Safety Report 9804304 (Version 2)
Quarter: 2014Q1

REPORT INFORMATION
  Report Type: Spontaneous
  Country: US (occurrence: US)
  Receive Date: 20140108
  Receipt Date: 20140218
  Transmission Date: 20141002
  Serious: No
  Sender: FDA-Public Use
  Company Number: US-GILEAD-2014-0091483

PATIENT
  Sex: Male

DRUGS (4)
  1. LETAIRIS [Suspect]
     Indication: PULMONARY HYPERTENSION
     Dosage: 5 MG, QD
     Route: 065
     Dates: start: 20121223
  2. LETAIRIS [Suspect]
     Indication: SLEEP APNOEA SYNDROME
  3. LETAIRIS [Suspect]
     Indication: DRUG THERAPY
  4. LETAIRIS [Suspect]
     Indication: DRUG ABUSE

REACTIONS (1)
  - Bronchitis [Unknown]
